FAERS Safety Report 7783957-0 (Version None)
Quarter: 2011Q3

REPORT INFORMATION
  Report Type: 
  Country: None (occurrence: None)
  Receive Date: 20110928
  Receipt Date: 20110610
  Transmission Date: 20111222
  Serious: No
  Sender: FDA-Public Use
  Company Number: US-BAYER-2011-050971

PATIENT

DRUGS (3)
  1. ALEVE (CAPLET) [Suspect]
     Route: 048
  2. MOTRIN [Concomitant]
  3. OXYCODONE [Concomitant]

REACTIONS (1)
  - INCORRECT DOSE ADMINISTERED [None]
